FAERS Safety Report 19631660 (Version 1)
Quarter: 2021Q3

REPORT INFORMATION
  Report Type: Spontaneous
  Country: US (occurrence: US)
  Receive Date: 20210728
  Receipt Date: 20210728
  Transmission Date: 20211014
  Serious: No
  Sender: FDA-Public Use
  Company Number: US-ROCHE-2589253

PATIENT
  Age: 44 Year
  Sex: Female
  Weight: 90.8 kg

DRUGS (3)
  1. EFFEXOR [Concomitant]
     Active Substance: VENLAFAXINE HYDROCHLORIDE
     Indication: ANXIETY
     Route: 048
     Dates: start: 2010
  2. XELODA [Suspect]
     Active Substance: CAPECITABINE
     Indication: BREAST CANCER STAGE IV
     Dosage: 4 PILLS IN THE AM AND 4 PILLS IN THE PM ;ONGOING: NO
     Route: 048
     Dates: start: 201112, end: 201203
  3. XELODA [Suspect]
     Active Substance: CAPECITABINE
     Indication: BREAST CANCER METASTATIC
     Dosage: 4 PILLS IN THE AM 3 IN THE PM, 2 WEEKS ON, 2 WEEKS OFF ;ONGOING: NO
     Route: 048
     Dates: start: 201812, end: 201912

REACTIONS (3)
  - Diarrhoea [Recovered/Resolved]
  - Palmar-plantar erythrodysaesthesia syndrome [Not Recovered/Not Resolved]
  - Fatigue [Not Recovered/Not Resolved]

NARRATIVE: CASE EVENT DATE: 201112
